FAERS Safety Report 12503993 (Version 2)
Quarter: 2016Q3

REPORT INFORMATION
  Report Type: Spontaneous
  Country: JP (occurrence: JP)
  Receive Date: 20160628
  Receipt Date: 20160822
  Transmission Date: 20161109
  Serious: Yes (Other)
  Sender: FDA-Public Use
  Company Number: JP-PFIZER INC-2016314326

PATIENT
  Age: 70 Year
  Sex: Male

DRUGS (4)
  1. ANCARON [Suspect]
     Active Substance: AMIODARONE HYDROCHLORIDE
     Indication: ISCHAEMIC CARDIOMYOPATHY
     Dosage: UNK
     Route: 048
  2. CARVEDILOL. [Interacting]
     Active Substance: CARVEDILOL
     Indication: ISCHAEMIC CARDIOMYOPATHY
     Dosage: UNK
     Route: 065
  3. DIGOXIN. [Interacting]
     Active Substance: DIGOXIN
     Indication: ISCHAEMIC CARDIOMYOPATHY
     Dosage: UNK
     Route: 065
  4. LEDIPASVIR/SOFOSBUVIR [Interacting]
     Active Substance: LEDIPASVIR\SOFOSBUVIR
     Indication: CHRONIC HEPATITIS
     Dosage: UNK
     Route: 048
     Dates: start: 201601

REACTIONS (6)
  - Toxicity to various agents [Unknown]
  - Bradycardia [Unknown]
  - Vomiting [Unknown]
  - Cardioactive drug level increased [Recovering/Resolving]
  - Drug interaction [Unknown]
  - Nausea [Unknown]
